FAERS Safety Report 8290058-4 (Version None)
Quarter: 2012Q2

REPORT INFORMATION
  Report Type: 
  Country: None (occurrence: None)
  Receive Date: 20120417
  Receipt Date: 20120416
  Transmission Date: 20120825
  Serious: Yes (Other)
  Sender: FDA-Public Use
  Company Number: US-PFIZER INC-2012093859

PATIENT
  Sex: Female
  Weight: 50.794 kg

DRUGS (2)
  1. IBUPROFEN (ADVIL) [Suspect]
     Dosage: UNK, 2 CAPSULES TOGETHER
     Route: 048
     Dates: start: 20120412, end: 20120412
  2. IBUPROFEN (ADVIL) [Suspect]
     Indication: PAIN
     Dosage: UNK, ONE CAPSULE OF UNKNOWN DOSE ONCE
     Route: 048
     Dates: start: 20120301, end: 20120412

REACTIONS (1)
  - HYPERSENSITIVITY [None]
